FAERS Safety Report 5597524-0 (Version None)
Quarter: 2008Q1

REPORT INFORMATION
  Report Type: 
  Country: None (occurrence: None)
  Receive Date: 20080121
  Receipt Date: 20080111
  Transmission Date: 20080703
  Serious: Yes (Hospitalization)
  Sender: FDA-Public Use
  Company Number: CH-WYE-H01394207

PATIENT
  Age: 84 Year
  Sex: Male

DRUGS (5)
  1. CORDARONE [Suspect]
     Indication: VENTRICULAR FIBRILLATION
     Route: 048
     Dates: start: 20061201, end: 20070301
  2. CORDARONE [Suspect]
     Indication: VENTRICULAR FLUTTER
  3. BELOC ZOK [Suspect]
     Indication: CARDIAC FAILURE
     Route: 048
  4. TOREM [Suspect]
     Indication: ESSENTIAL HYPERTENSION
     Route: 048
  5. LEUPROLIDE ACETATE [Suspect]
     Indication: PROSTATE CANCER
     Dosage: 22.5 MG Q3M UNK
     Route: 058
     Dates: start: 20070301, end: 20070901

REACTIONS (6)
  - ACTIVATED PARTIAL THROMBOPLASTIN TIME PROLONGED [None]
  - ASCITES [None]
  - CHOLESTASIS [None]
  - RENAL FAILURE CHRONIC [None]
  - TENSION [None]
  - WHITE BLOOD CELL COUNT INCREASED [None]
